FAERS Safety Report 6219640-2 (Version None)
Quarter: 2009Q2

REPORT INFORMATION
  Report Type: 
  Country: None (occurrence: None)
  Receive Date: 20090605
  Receipt Date: 20090526
  Transmission Date: 20091009
  Serious: Yes (Hospitalization, Other)
  Sender: FDA-Public Use
  Company Number: 2009AP001807

PATIENT
  Age: 44 Year
  Sex: Female

DRUGS (12)
  1. DILTIAZEM HCL [Suspect]
     Dosage: 360 MG; QD;
  2. ENALAPRIL MALEATE [Suspect]
     Dosage: 5 MG; BID;, 10 MG; BID;, 20 MG; BID;
  3. CLOZAPINE [Suspect]
     Dosage: 725 MG; QD;, 25 MG; QD;, 300 MG; QD;, 900 MG; QD;
  4. CLONIDINE [Suspect]
     Dosage: 0.1 MG; BID;
  5. HYDROXYZINE [Suspect]
     Dosage: 50 MG; BID;
  6. PSYLLIUM [Concomitant]
  7. VALPROATE SODIUM [Concomitant]
  8. DESMORESSIN [Concomitant]
  9. MULTI-VITAMINS [Concomitant]
  10. ACETYLSALICYLIC ACID [Concomitant]
  11. ALBUTEROL [Concomitant]
  12. IPRATROPIUM BROMIDE [Concomitant]

REACTIONS (8)
  - ABDOMINAL SEPSIS [None]
  - COGNITIVE DISORDER [None]
  - CONFUSIONAL STATE [None]
  - FATIGUE [None]
  - GENERAL PHYSICAL HEALTH DETERIORATION [None]
  - INTESTINAL OBSTRUCTION [None]
  - LETHARGY [None]
  - MENTAL STATUS CHANGES [None]
